FAERS Safety Report 25826798 (Version 2)
Quarter: 2025Q3

REPORT INFORMATION
  Report Type: Report from Study
  Country: EU (occurrence: EU)
  Receive Date: 20250920
  Receipt Date: 20250930
  Transmission Date: 20251020
  Serious: Yes (Life-Threatening, Hospitalization, Other)
  Sender: ABBVIE
  Company Number: EU-ABBVIE-6464510

PATIENT
  Age: 24 Year
  Sex: Female
  Weight: 102.4 kg

DRUGS (12)
  1. ATOGEPANT [Suspect]
     Active Substance: ATOGEPANT
     Indication: Migraine with aura
     Route: 048
     Dates: start: 20250803
  2. NAPROXEN [Concomitant]
     Active Substance: NAPROXEN
     Indication: Migraine
     Route: 048
     Dates: start: 2025
  3. QUETIAPINE [Concomitant]
     Active Substance: QUETIAPINE
     Indication: Borderline personality disorder
     Route: 048
     Dates: start: 20221120
  4. BISOPROLOL [Concomitant]
     Active Substance: BISOPROLOL
     Indication: Migraine
     Route: 048
     Dates: start: 2023
  5. pantomed [Concomitant]
     Indication: Gastrointestinal disorder prophylaxis
     Route: 048
     Dates: start: 20230113
  6. VENLAFAXINE [Concomitant]
     Active Substance: VENLAFAXINE HYDROCHLORIDE
     Indication: Migraine
     Route: 048
     Dates: start: 20250314
  7. MIRTAZAPINE [Concomitant]
     Active Substance: MIRTAZAPINE
     Indication: Product used for unknown indication
     Route: 048
     Dates: start: 20240331
  8. RIBOFLAVIN [Concomitant]
     Active Substance: RIBOFLAVIN
     Indication: Migraine
     Route: 048
     Dates: start: 2025
  9. Minipress prazosine [Concomitant]
     Indication: Migraine
     Route: 048
     Dates: start: 20250429
  10. Temesta [Concomitant]
     Indication: Apnoea
     Route: 048
     Dates: start: 20250803
  11. ALIZAPRIDE HYDROCHLORIDE [Concomitant]
     Active Substance: ALIZAPRIDE HYDROCHLORIDE
     Indication: Dysphagia
     Route: 048
     Dates: start: 20250824, end: 20250824
  12. Largactil IV [Concomitant]
     Indication: Migraine
     Dosage: DOSE-  25 MG/ML/DAY
     Route: 042
     Dates: start: 20250810, end: 20250812

REACTIONS (2)
  - Suicide attempt [Recovered/Resolved with Sequelae]
  - Status migrainosus [Recovered/Resolved]

NARRATIVE: CASE EVENT DATE: 20250902
